FAERS Safety Report 9543959 (Version 2)
Quarter: 2014Q1

REPORT INFORMATION
  Report Type: Spontaneous
  Country: US (occurrence: None)
  Receive Date: 20130524
  Receipt Date: 20130724
  Transmission Date: 20141002
  Serious: Yes (Other)
  Sender: FDA-Public Use
  Company Number: PHEH2013US001259

PATIENT
  Age: 34 Year
  Sex: Male
  Weight: 136.1 kg

DRUGS (2)
  1. GILENYA [Suspect]
     Indication: MULTIPLE SCLEROSIS
     Route: 048
     Dates: start: 20130109
  2. VITAMIN D2 (ERGOCALCIFEROL) CAPSULES 50000IG [Suspect]
     Dosage: 1 CAP DAILY ORAL
     Route: 048

REACTIONS (4)
  - Dyspnoea [None]
  - Chest pain [None]
  - Hypoaesthesia [None]
  - Cystitis [None]
